FAERS Safety Report 5245203-1 (Version None)
Quarter: 2007Q1

REPORT INFORMATION
  Report Type: 
  Country: None (occurrence: None)
  Receive Date: 20070223
  Receipt Date: 20070212
  Transmission Date: 20070707
  Serious: Yes (Other)
  Sender: FDA-Public Use
  Company Number: IS-ROCHE-482666

PATIENT
  Age: 25 Year
  Sex: Female

DRUGS (1)
  1. ROACCUTAN [Suspect]
     Indication: DRUG USE FOR UNKNOWN INDICATION
     Route: 065
     Dates: start: 20070119, end: 20070123

REACTIONS (2)
  - NO ADVERSE EFFECT [None]
  - PREGNANCY [None]
